FAERS Safety Report 24864735 (Version 1)
Quarter: 2025Q1

REPORT INFORMATION
  Report Type: Spontaneous
  Country: CN (occurrence: CN)
  Receive Date: 20250121
  Receipt Date: 20250121
  Transmission Date: 20250409
  Serious: Yes (Other)
  Sender: BEIGENE
  Company Number: CN-BEIGENE-BGN-2025-000737

PATIENT
  Age: 70 Year

DRUGS (8)
  1. TISLELIZUMAB [Suspect]
     Active Substance: TISLELIZUMAB
     Indication: Lung squamous cell carcinoma stage III
     Dosage: 200 MILLIGRAM ON DAY 1, Q3WK
     Route: 041
  2. TISLELIZUMAB [Suspect]
     Active Substance: TISLELIZUMAB
     Dosage: 200 MILLIGRAM ON DAY 1, Q3WK
  3. TISLELIZUMAB [Suspect]
     Active Substance: TISLELIZUMAB
     Dosage: 200 MILLIGRAM ON DAY 1, Q3WK
  4. TISLELIZUMAB [Suspect]
     Active Substance: TISLELIZUMAB
     Dosage: 200 MILLIGRAM ON DAY 1, Q3WK
     Route: 041
  5. CARBOPLATIN [Suspect]
     Active Substance: CARBOPLATIN
     Indication: Squamous cell carcinoma of lung
  6. CARBOPLATIN [Suspect]
     Active Substance: CARBOPLATIN
     Route: 041
  7. PACLITAXEL [Suspect]
     Active Substance: PACLITAXEL
     Indication: Lung squamous cell carcinoma stage III
  8. PACLITAXEL [Suspect]
     Active Substance: PACLITAXEL
     Route: 041

REACTIONS (2)
  - Granulocyte count decreased [Recovering/Resolving]
  - Pyrexia [Recovering/Resolving]
